FAERS Safety Report 21808798 (Version 2)
Quarter: 2023Q1

REPORT INFORMATION
  Report Type: Report from Study
  Country: None (occurrence: CN)
  Receive Date: 20230103
  Receipt Date: 20230126
  Transmission Date: 20230417
  Serious: Yes (Hospitalization)
  Sender: FDA-Public Use
  Company Number: CN-Jiangsu Hengrui Medicine Co., Ltd.-2136354

PATIENT
  Age: 58 Year
  Sex: Male
  Weight: 61 kg

DRUGS (7)
  1. OXALIPLATIN [Suspect]
     Active Substance: OXALIPLATIN
     Indication: Adenocarcinoma gastric
     Route: 041
     Dates: start: 20221207, end: 20221207
  2. GIMERACIL\OTERACIL\TEGAFUR [Suspect]
     Active Substance: GIMERACIL\OTERACIL\TEGAFUR
     Route: 048
     Dates: start: 20221207, end: 20221210
  3. SERPLULIMAB [Suspect]
     Active Substance: SERPLULIMAB
     Route: 041
     Dates: start: 20220823, end: 20221007
  4. Vitamin B6 Tablets [Concomitant]
     Route: 048
     Dates: start: 20221207, end: 20221219
  5. OMEPRAZOLE AND SODIUM BICARBONATE [Concomitant]
     Active Substance: OMEPRAZOLE\SODIUM BICARBONATE
     Route: 048
     Dates: start: 20221207, end: 20221219
  6. ONDANSETRON HYDROCHLORIDE [Concomitant]
     Active Substance: ONDANSETRON HYDROCHLORIDE
     Route: 048
     Dates: start: 20221207
  7. Oryz-Aspergillus Enzyme And Pancreatin Tablet [Concomitant]
     Route: 048
     Dates: start: 20221207

REACTIONS (3)
  - Asthenia [Recovered/Resolved]
  - Nausea [Recovered/Resolved]
  - Decreased appetite [Recovered/Resolved]

NARRATIVE: CASE EVENT DATE: 20221212
